FAERS Safety Report 8070173-0 (Version None)
Quarter: 2012Q1

REPORT INFORMATION
  Report Type: 
  Country: None (occurrence: None)
  Receive Date: 20120125
  Receipt Date: 20120112
  Transmission Date: 20120608
  Serious: Yes (Hospitalization)
  Sender: FDA-Public Use
  Company Number: TR-MEDIMMUNE-MEDI-0014527

PATIENT
  Sex: Female
  Weight: 4.5 kg

DRUGS (3)
  1. CEBETABS [Concomitant]
     Route: 048
  2. SYNAGIS [Suspect]
     Route: 030
     Dates: start: 20111011, end: 20111215
  3. FERROUS GLYCINE SULFATE [Concomitant]
     Route: 048

REACTIONS (8)
  - BRONCHITIS [None]
  - CRYING [None]
  - PYREXIA [None]
  - FATIGUE [None]
  - DECREASED APPETITE [None]
  - DIARRHOEA [None]
  - COUGH [None]
  - ROTAVIRUS INFECTION [None]
